FAERS Safety Report 16387433 (Version 1)
Quarter: 2019Q2

REPORT INFORMATION
  Report Type: Spontaneous
  Country: IT (occurrence: IT)
  Receive Date: 20190604
  Receipt Date: 20190604
  Transmission Date: 20190711
  Serious: Yes (Other)
  Sender: FDA-Public Use
  Company Number: IT-TEVA-2019-IT-1057607

PATIENT
  Age: 85 Year
  Sex: Female

DRUGS (9)
  1. LIBRADIN [Suspect]
     Active Substance: BARNIDIPINE HYDROCHLORIDE
     Indication: HYPERTENSION
     Route: 048
  2. ACETYLSALICYLIC ACID [Concomitant]
     Active Substance: ASPIRIN
  3. LANSOX [Concomitant]
     Active Substance: LANSOPRAZOLE
  4. EUTIROX 75 MICROGRAMMI COMPRESSE [Concomitant]
     Active Substance: LEVOTHYROXINE SODIUM
  5. TOTALIP [Concomitant]
     Active Substance: ATORVASTATIN
  6. EUTIROX 50 MICROGRAMMI COMPRESSE [Concomitant]
     Active Substance: LEVOTHYROXINE SODIUM
  7. NITRODERM [Concomitant]
     Active Substance: NITROGLYCERIN
  8. LOSARTAN. [Suspect]
     Active Substance: LOSARTAN
     Indication: HYPERTENSION
     Route: 048
     Dates: start: 20180101, end: 20180524
  9. FERRO-GRAD [Concomitant]
     Active Substance: FERROUS SULFATE

REACTIONS (5)
  - Ventricular extrasystoles [Recovering/Resolving]
  - Asthenia [Recovering/Resolving]
  - Metabolic alkalosis [Recovering/Resolving]
  - Hypokalaemia [Recovering/Resolving]
  - Presyncope [Recovering/Resolving]

NARRATIVE: CASE EVENT DATE: 20180524
